FAERS Safety Report 9723129 (Version 1)
Quarter: 2013Q4

REPORT INFORMATION
  Report Type: Spontaneous
  Country: GB (occurrence: None)
  Receive Date: 20131126
  Receipt Date: 20131126
  Transmission Date: 20140711
  Serious: Yes (Hospitalization)
  Sender: FDA-Public Use
  Company Number: FK201305092

PATIENT
  Sex: 0

DRUGS (2)
  1. IRINOTECAN [Suspect]
     Indication: PRODUCT USED FOR UNKNOWN INDICATION
  2. OXALIPLATIN [Concomitant]

REACTIONS (4)
  - Dizziness [None]
  - Anxiety [None]
  - Oedema mouth [None]
  - Hypersensitivity [None]
